FAERS Safety Report 5774386-X (Version None)
Quarter: 2008Q2

REPORT INFORMATION
  Report Type: 
  Country: None (occurrence: None)
  Receive Date: 20080616
  Receipt Date: 20080604
  Transmission Date: 20081010
  Serious: Yes (Other)
  Sender: FDA-Public Use
  Company Number: US-PFIZER INC-2008026581

PATIENT
  Sex: Male
  Weight: 127 kg

DRUGS (6)
  1. TIKOSYN [Suspect]
     Indication: ATRIAL FIBRILLATION
     Route: 048
  2. ALL OTHER THERAPEUTIC PRODUCTS [Concomitant]
     Dosage: DAILY DOSE:180MG
  3. LISINOPRIL [Concomitant]
     Dosage: DAILY DOSE:20MG
  4. TOPROL-XL [Concomitant]
     Dosage: DAILY DOSE:25MG
  5. WARFARIN [Concomitant]
     Dosage: DAILY DOSE:7MG
  6. CELEBREX [Concomitant]
     Indication: ARTHRITIS
     Dosage: DAILY DOSE:200MG

REACTIONS (1)
  - DEPRESSION [None]
